FAERS Safety Report 9891027 (Version 1)
Quarter: 2014Q1

REPORT INFORMATION
  Report Type: Spontaneous
  Country: US (occurrence: None)
  Receive Date: 20140211
  Receipt Date: 20140211
  Transmission Date: 20141002
  Serious: Yes (Other)
  Sender: FDA-Public Use
  Company Number: None

PATIENT
  Sex: 0

DRUGS (3)
  1. PACLITAXEL [Suspect]
  2. CARBOPLATIN [Suspect]
  3. BEVACIZUMAB [Suspect]

REACTIONS (10)
  - Faecal incontinence [None]
  - Drooling [None]
  - Unresponsive to stimuli [None]
  - Atrial fibrillation [None]
  - Vomiting [None]
  - Diarrhoea [None]
  - Haematochezia [None]
  - Decreased appetite [None]
  - Cardio-respiratory arrest [None]
  - Pulse absent [None]
